FAERS Safety Report 9144187 (Version 1)
Quarter: 2013Q1

REPORT INFORMATION
  Report Type: Spontaneous
  Country: US (occurrence: US)
  Receive Date: 20130306
  Receipt Date: 20130306
  Transmission Date: 20140127
  Serious: Yes (Hospitalization)
  Sender: FDA-Public Use
  Company Number: US-PFIZER INC-2013076906

PATIENT
  Age: 34 Year
  Sex: Male
  Weight: 111 kg

DRUGS (3)
  1. DILANTIN [Suspect]
     Indication: EPILEPSY
     Dosage: UNK
  2. DILANTIN [Suspect]
     Dosage: 500 MG, 1X/DAY
  3. LISINOPRIL [Concomitant]
     Indication: HYPERTENSION
     Dosage: 20 MG, 1X/DAY

REACTIONS (1)
  - Joint dislocation [Unknown]
